FAERS Safety Report 11487859 (Version 2)
Quarter: 2015Q3

REPORT INFORMATION
  Report Type: Spontaneous
  Country: JP (occurrence: JP)
  Receive Date: 20150909
  Receipt Date: 20150918
  Transmission Date: 20151125
  Serious: Yes (Other)
  Sender: FDA-Public Use
  Company Number: JP-PFIZER INC-2015295884

PATIENT
  Age: 61 Year
  Sex: Male

DRUGS (1)
  1. MIGLITOL. [Suspect]
     Active Substance: MIGLITOL
     Dosage: 150 MG, 1X/DAY
     Route: 048
     Dates: start: 20150526, end: 20150529

REACTIONS (1)
  - Urinary retention [Recovered/Resolved]

NARRATIVE: CASE EVENT DATE: 20150529
